FAERS Safety Report 9916972 (Version 2)
Quarter: 2014Q2

REPORT INFORMATION
  Report Type: Spontaneous
  Country: CN (occurrence: CN)
  Receive Date: 20140221
  Receipt Date: 20140519
  Transmission Date: 20141212
  Serious: Yes (Other)
  Sender: FDA-Public Use
  Company Number: CN-ABBVIE-14P-035-1204377-00

PATIENT
  Age: 6 Year
  Sex: Female

DRUGS (3)
  1. DEPAKINE [Suspect]
     Indication: EPILEPSY
     Route: 048
     Dates: start: 20131205
  2. DEPAKINE [Suspect]
     Route: 048
     Dates: end: 201404
  3. VALPROATE SODIUM [Concomitant]
     Indication: PRODUCT USED FOR UNKNOWN INDICATION
     Dates: start: 2011

REACTIONS (5)
  - Stupor [Recovering/Resolving]
  - Gaze palsy [Recovering/Resolving]
  - Generalised tonic-clonic seizure [Recovering/Resolving]
  - Tremor [Recovering/Resolving]
  - Condition aggravated [Recovering/Resolving]
